FAERS Safety Report 15478773 (Version 2)
Quarter: 2018Q4

REPORT INFORMATION
  Report Type: Spontaneous
  Country: FR (occurrence: FR)
  Receive Date: 20181009
  Receipt Date: 20181228
  Transmission Date: 20190205
  Serious: Yes (Death, Hospitalization, Other)
  Sender: FDA-Public Use
  Company Number: FR-BIOVITRUM-2018FR1147

PATIENT
  Age: 1 Month
  Sex: Male
  Weight: 4.3 kg

DRUGS (24)
  1. MIDAZOLAM [Concomitant]
     Active Substance: MIDAZOLAM HYDROCHLORIDE
     Indication: SEDATION
     Dates: start: 20180821, end: 20180823
  2. ATRACURIUM [Concomitant]
     Active Substance: ATRACURIUM
     Indication: SEDATION
     Dates: start: 20180822, end: 20180823
  3. HYDROCORTISONE HEMISUCCINATE [Concomitant]
     Active Substance: HYDROCORTISONE HEMISUCCINATE
  4. ORFADIN [Suspect]
     Active Substance: NITISINONE
     Indication: TYROSINAEMIA
     Dates: start: 20180817, end: 20180822
  5. AMMONAPS [Suspect]
     Active Substance: SODIUM PHENYLBUTYRATE
     Indication: HYPERAMMONAEMIA
     Dates: start: 20180819, end: 20180823
  6. OMEPRAZOLE. [Concomitant]
     Active Substance: OMEPRAZOLE
     Indication: PROPHYLAXIS
     Route: 048
     Dates: start: 20180808, end: 20180823
  7. TAZOCILLINE [Concomitant]
     Active Substance: PIPERACILLIN SODIUM\TAZOBACTAM SODIUM
     Indication: SEPTIC SHOCK
     Dosage: 100 MG/KG/8 HOURS
     Dates: start: 20180815, end: 20180818
  8. KETAMINE [Concomitant]
     Active Substance: KETAMINE
     Indication: SEDATION
     Dosage: 1 MICROGRAM/KG/HOUR
     Dates: start: 20180808, end: 20180823
  9. IMIPENEM [Concomitant]
     Active Substance: IMIPENEM
  10. AMPHOTERICIN B. [Concomitant]
     Active Substance: AMPHOTERICIN B
  11. CLOBAZAM. [Concomitant]
     Active Substance: CLOBAZAM
  12. FUROSEMIDE. [Concomitant]
     Active Substance: FUROSEMIDE
     Indication: FLUID RETENTION
     Dates: start: 20180808, end: 20180823
  13. VANCOMYCIN [Concomitant]
     Active Substance: VANCOMYCIN
  14. ALBUMIN [Concomitant]
     Active Substance: ALBUMIN HUMAN
  15. SODIUM BENZOATE [Concomitant]
     Active Substance: SODIUM BENZOATE
  16. MILRINONE [Concomitant]
     Active Substance: MILRINONE
     Indication: CARDIAC DISORDER
     Dosage: 0.4 MICROGRAM/KG/MIN
     Dates: start: 20180810, end: 20180823
  17. GENTAMICIN. [Concomitant]
     Active Substance: GENTAMICIN
     Indication: SEPTIC SHOCK
     Dates: end: 20180818
  18. DEOXYCHOLIC ACID [Concomitant]
     Active Substance: DEOXYCHOLIC ACID
     Indication: LIVER DISORDER
     Dates: start: 20180821, end: 20180823
  19. VORICONAZOLE. [Concomitant]
     Active Substance: VORICONAZOLE
     Dosage: 4.5 MG/KG/12 HOURS
  20. FLAGYL [Concomitant]
     Active Substance: METRONIDAZOLE\METRONIDAZOLE HYDROCHLORIDE
     Indication: SEPTIC SHOCK
     Dates: end: 20180818
  21. SUFENTANIL [Concomitant]
     Active Substance: SUFENTANIL
     Indication: ANALGESIC THERAPY
     Dosage: 0.1 MICROGRAM/KG/HOUR
     Dates: start: 20180808, end: 20180823
  22. NORADRENALIN [Concomitant]
     Active Substance: NOREPINEPHRINE\NOREPINEPHRINE BITARTRATE
     Indication: CARDIAC DISORDER
     Dosage: 4.8MICROGRAM/KG/MIN
     Dates: start: 20180807, end: 20180823
  23. VITAMIN K1 [Concomitant]
     Active Substance: PHYTONADIONE
  24. CEFEPIME [Concomitant]
     Active Substance: CEFEPIME HYDROCHLORIDE
     Indication: SEPTIC SHOCK
     Dosage: 50 MG/KG/12 HOURS
     Dates: start: 20180812, end: 20180818

REACTIONS (5)
  - Disseminated intravascular coagulation [Not Recovered/Not Resolved]
  - Hypoxia [Fatal]
  - Aspergillus infection [Fatal]
  - Septic shock [Fatal]
  - Pulmonary haemorrhage [Not Recovered/Not Resolved]

NARRATIVE: CASE EVENT DATE: 20180808
